FAERS Safety Report 9162318 (Version 2)
Quarter: 2013Q1

REPORT INFORMATION
  Report Type: Spontaneous
  Country: ZA (occurrence: None)
  Receive Date: 20130222
  Receipt Date: 20130226
  Transmission Date: 20140127
  Serious: Yes (Other)
  Sender: FDA-Public Use
  Company Number: SYM-2013-00745

PATIENT
  Sex: Male

DRUGS (4)
  1. WELLBUTRIN [Suspect]
     Indication: PRODUCT USED FOR UNKNOWN INDICATION
     Dosage: 3 MONTHS AGO
     Route: 048
  2. ESOMEPRAZOLE [Concomitant]
  3. MODAFINIL [Concomitant]
  4. MESALAZINE [Concomitant]

REACTIONS (4)
  - Nephrolithiasis [None]
  - Eyelid oedema [None]
  - Alopecia [None]
  - Madarosis [None]
